FAERS Safety Report 4538299-3 (Version None)
Quarter: 2004Q4

REPORT INFORMATION
  Report Type: 
  Country: None (occurrence: None)
  Receive Date: 20041227
  Receipt Date: 20040901
  Transmission Date: 20050328
  Serious: Yes (Other)
  Sender: FDA-Public Use
  Company Number: DE-BRISTOL-MYERS SQUIBB COMPANY-12691226

PATIENT
  Age: 47 Year
  Sex: Male
  Weight: 103 kg

DRUGS (11)
  1. ABILIFY [Suspect]
     Route: 048
     Dates: start: 20040825
  2. THEOPHYLLINE CALCIUM SALICYLATE [Concomitant]
     Route: 048
  3. AMARYL [Concomitant]
     Route: 048
  4. UNAT [Concomitant]
     Route: 048
  5. ALLOPURINOL [Concomitant]
     Route: 048
  6. ZELDOX [Concomitant]
     Route: 048
     Dates: end: 20040901
  7. ISOSORBIDE MONONITRATE [Concomitant]
     Route: 048
  8. IPRATROPIUM + FENOTEROL [Concomitant]
     Route: 055
  9. ENOXAPARIN SODIUM [Concomitant]
     Route: 058
  10. TAVOR [Concomitant]
     Route: 048
  11. TOREM [Concomitant]
     Route: 048

REACTIONS (4)
  - BUNDLE BRANCH BLOCK LEFT [None]
  - CONDUCTION DISORDER [None]
  - ELECTROCARDIOGRAM QT CORRECTED INTERVAL PROLONGED [None]
  - SINUS TACHYCARDIA [None]
